FAERS Safety Report 8933847 (Version 1)
Quarter: 2012Q4

REPORT INFORMATION
  Report Type: 
  Country: FR (occurrence: FR)
  Receive Date: 20121129
  Receipt Date: 20121129
  Transmission Date: 20130627
  Serious: Yes (Hospitalization, Other)
  Sender: FDA-Public Use
  Company Number: FR-ASTRAZENECA-2012SE89228

PATIENT
  Age: 86 Year
  Sex: Male

DRUGS (10)
  1. ZESTRIL [Suspect]
     Indication: HYPERTENSION
     Route: 048
     Dates: start: 2006, end: 20120630
  2. SKENAN [Suspect]
     Route: 048
     Dates: start: 20120629, end: 20120630
  3. ACTISKENAN [Suspect]
     Route: 048
     Dates: start: 20120629, end: 20120630
  4. DUROGESIC [Suspect]
     Route: 062
     Dates: start: 20120629, end: 20120630
  5. TEMESTA [Suspect]
     Route: 048
     Dates: start: 2006, end: 20121004
  6. ZOMETA [Suspect]
     Indication: METASTASES TO BONE
     Route: 042
     Dates: start: 201206, end: 201206
  7. FLUDEX [Suspect]
     Route: 048
  8. ZOLOFT [Concomitant]
     Route: 048
  9. CASODEX [Concomitant]
  10. ENANTONE [Concomitant]

REACTIONS (7)
  - Agitation [Recovered/Resolved]
  - Urinary retention [Recovered/Resolved]
  - Rhabdomyolysis [Unknown]
  - Confusional state [Recovered/Resolved]
  - Disorientation [Recovered/Resolved]
  - Renal failure acute [Recovered/Resolved]
  - Fall [None]
